FAERS Safety Report 14496661 (Version 1)
Quarter: 2018Q1

REPORT INFORMATION
  Report Type: Spontaneous
  Country: US (occurrence: US)
  Receive Date: 20180206
  Receipt Date: 20180206
  Transmission Date: 20180509
  Serious: Yes (Hospitalization)
  Sender: FDA-Public Use
  Company Number: None

PATIENT
  Age: 49 Year
  Sex: Female

DRUGS (1)
  1. TRACLEER [Suspect]
     Active Substance: BOSENTAN
     Indication: PULMONARY ARTERIAL HYPERTENSION
     Route: 048
     Dates: start: 20170818

REACTIONS (4)
  - Cholecystitis acute [None]
  - Pneumonia [None]
  - Systemic inflammatory response syndrome [None]
  - Anaemia [None]

NARRATIVE: CASE EVENT DATE: 20180128
